FAERS Safety Report 8411537 (Version 3)
Quarter: 2013Q1

REPORT INFORMATION
  Report Type: Spontaneous
  Country: US (occurrence: None)
  Receive Date: 20120208
  Receipt Date: 20121214
  Transmission Date: 20140127
  Serious: Yes (Hospitalization, Other)
  Sender: FDA-Public Use
  Company Number: TPA2012A00151

PATIENT
  Age: 74 Year
  Sex: Female
  Weight: 68.04 kg

DRUGS (8)
  1. ACTOS [Suspect]
     Dosage: 15 MG, 1 IN 1 D, PER ORAL,
     Route: 048
     Dates: start: 20061220, end: 20081103
  2. AMLODIPINE [Concomitant]
  3. HYDROCHLOROTHIAZIDE (HYDROCHLOROTHIAZIDE) [Concomitant]
  4. VITAMIN D [Concomitant]
  5. DIOVAN [Concomitant]
  6. AVAPRO [Concomitant]
  7. ARANESP [Concomitant]
  8. LEVAQUIN [Concomitant]

REACTIONS (3)
  - CYSTITIS [None]
  - BLADDER TRANSITIONAL CELL CARCINOMA [None]
  - NEOPLASM RECURRENCE [None]
